FAERS Safety Report 24533499 (Version 1)
Quarter: 2024Q4

REPORT INFORMATION
  Report Type: Spontaneous
  Country: CN (occurrence: CN)
  Receive Date: 20241022
  Receipt Date: 20241022
  Transmission Date: 20250114
  Serious: Yes (Other)
  Sender: PFIZER
  Company Number: CN-PFIZER INC-PV202400135281

PATIENT
  Age: 54 Year
  Sex: Female
  Weight: 91.9 kg

DRUGS (2)
  1. EPIRUBICIN HYDROCHLORIDE [Suspect]
     Active Substance: EPIRUBICIN HYDROCHLORIDE
     Indication: Breast cancer in situ
     Dosage: 160 MG, 1X/DAY
     Route: 041
     Dates: start: 20241009, end: 20241009
  2. SODIUM CHLORIDE [Concomitant]
     Active Substance: SODIUM CHLORIDE
     Indication: Vehicle solution use
     Dosage: 250 ML, 1X/DAY
     Route: 041
     Dates: start: 20241009, end: 20241009

REACTIONS (2)
  - Flushing [Recovering/Resolving]
  - Skin temperature increased [Recovering/Resolving]

NARRATIVE: CASE EVENT DATE: 20241009
